FAERS Safety Report 8819562 (Version 1)
Quarter: 2013Q2

REPORT INFORMATION
  Report Type: Spontaneous
  Country: BR (occurrence: BR)
  Receive Date: 20121001
  Receipt Date: 20121001
  Transmission Date: 20140414
  Serious: Yes (Other)
  Sender: FDA-Public Use
  Company Number: BR-ACCORD-014739

PATIENT
  Sex: Female
  Weight: 55.6 kg

DRUGS (5)
  1. DIPHENHYDRAMINE [Concomitant]
     Indication: PREMEDICATION
     Route: 042
     Dates: start: 20120913, end: 20120913
  2. PACLITAXEL [Suspect]
     Indication: OVARIAN CANCER
     Route: 042
     Dates: start: 20120913, end: 20120913
  3. DEXAMETHASONE [Concomitant]
     Indication: PREMEDICATION
     Route: 042
     Dates: start: 20120913, end: 20120913
  4. RANITIDINE [Concomitant]
     Indication: PREMEDICATION
     Route: 042
     Dates: start: 20120913, end: 20120913
  5. ONDANSETRON [Concomitant]
     Indication: PREMEDICATION
     Route: 042
     Dates: start: 20120913, end: 20120913

REACTIONS (6)
  - Erythema [Recovering/Resolving]
  - Dyspnoea [Recovering/Resolving]
  - Hypertension [Recovering/Resolving]
  - Tachycardia [Recovering/Resolving]
  - Psychomotor hyperactivity [Recovering/Resolving]
  - Hypertensive emergency [Recovering/Resolving]
